FAERS Safety Report 9198766 (Version 1)
Quarter: 2013Q1

REPORT INFORMATION
  Report Type: Spontaneous
  Country: US (occurrence: US)
  Receive Date: 20130329
  Receipt Date: 20130329
  Transmission Date: 20140127
  Serious: Yes (Hospitalization)
  Sender: FDA-Public Use
  Company Number: US-GENZYME-FABR-1003132

PATIENT
  Age: 49 Year
  Sex: Male

DRUGS (3)
  1. FABRAZYME [Suspect]
     Indication: FABRY^S DISEASE
     Dosage: 90 MG, Q2W
     Route: 042
     Dates: start: 2007
  2. BENADRYL [Concomitant]
     Indication: PREMEDICATION
     Dosage: 50 MG, UNK
     Route: 065
  3. TYLENOL [Concomitant]
     Indication: PREMEDICATION
     Dosage: 650 MG, UNK
     Route: 065

REACTIONS (1)
  - Myocardial infarction [Unknown]
